FAERS Safety Report 24664103 (Version 1)
Quarter: 2024Q4

REPORT INFORMATION
  Report Type: Spontaneous
  Country: US (occurrence: US)
  Receive Date: 20241126
  Receipt Date: 20241126
  Transmission Date: 20250115
  Serious: Yes (Other)
  Sender: AUROBINDO
  Company Number: US-AUROBINDO-AUR-APL-2024-056951

PATIENT
  Sex: Female

DRUGS (9)
  1. VALGANCICLOVIR [Suspect]
     Active Substance: VALGANCICLOVIR
     Indication: Cytomegalovirus viraemia
     Dosage: UNK
     Route: 065
  2. GANCICLOVIR [Suspect]
     Active Substance: GANCICLOVIR
     Indication: Cytomegalovirus viraemia
     Dosage: UNK  1 MONTH OF AGE
     Route: 065
  3. GANCICLOVIR [Suspect]
     Active Substance: GANCICLOVIR
     Dosage: UNK ON DAY +63. RE-INITIATED
     Route: 065
  4. FLUDARABINE [Concomitant]
     Active Substance: FLUDARABINE PHOSPHATE
     Indication: Prophylaxis against graft versus host disease
     Dosage: UNK
     Route: 065
  5. BUSULFAN [Concomitant]
     Active Substance: BUSULFAN
     Indication: Prophylaxis against graft versus host disease
     Dosage: UNK
     Route: 065
  6. THIOTEPA [Concomitant]
     Active Substance: THIOTEPA
     Indication: Prophylaxis against graft versus host disease
     Dosage: UNK
     Route: 065
  7. FOSCARNET [Concomitant]
     Active Substance: FOSCARNET
     Indication: Prophylaxis against graft versus host disease
     Dosage: UNK  DAY +28
     Route: 065
  8. CYTOGAM [Concomitant]
     Active Substance: HUMAN CYTOMEGALOVIRUS IMMUNE GLOBULIN
     Indication: Cytomegalovirus viraemia
     Dosage: UNK ON DAY +13
     Route: 065
  9. CIDOFOVIR [Concomitant]
     Active Substance: CIDOFOVIR
     Indication: Cytomegalovirus viraemia
     Dosage: UNK ON DAY +33
     Route: 065

REACTIONS (1)
  - Drug ineffective [Unknown]
